FAERS Safety Report 6437079-1 (Version None)
Quarter: 2009Q4

REPORT INFORMATION
  Report Type: 
  Country: None (occurrence: None)
  Receive Date: 20091110
  Receipt Date: 20071024
  Transmission Date: 20100525
  Serious: No
  Sender: FDA-Public Use
  Company Number: AEUSA200700253

PATIENT
  Age: 72 Year
  Sex: Female
  Weight: 47 kg

DRUGS (2)
  1. GAMUNEX [Suspect]
     Indication: HYPOGAMMAGLOBULINAEMIA
     Dosage: 25 GM;QM;IV
     Route: 042
     Dates: start: 20071022, end: 20071022
  2. GAMUNEX [Suspect]

REACTIONS (3)
  - INFUSION RELATED REACTION [None]
  - PRURITUS [None]
  - RASH [None]
